FAERS Safety Report 5463040-X (Version None)
Quarter: 2007Q3

REPORT INFORMATION
  Report Type: 
  Country: None (occurrence: None)
  Receive Date: 20070918
  Receipt Date: 20070918
  Transmission Date: 20080115
  Serious: No
  Sender: FDA-Public Use
  Company Number: None

PATIENT
  Age: 33 Year
  Sex: Male

DRUGS (1)
  1. ZYBAN [Suspect]
     Dosage: ORAL;0;0
     Route: 048
     Dates: start: 20070823, end: 20070831

REACTIONS (2)
  - INSOMNIA [None]
  - NIGHTMARE [None]
